FAERS Safety Report 5258858-2 (Version None)
Quarter: 2007Q1

REPORT INFORMATION
  Report Type: 
  Country: None (occurrence: None)
  Receive Date: 20070308
  Receipt Date: 20070306
  Transmission Date: 20070707
  Serious: Yes (Disabling)
  Sender: FDA-Public Use
  Company Number: DE-GLAXOSMITHKLINE-D0052281A

PATIENT
  Age: 61 Year
  Sex: Female
  Weight: 91 kg

DRUGS (3)
  1. QUILONUM RETARD [Suspect]
     Indication: SCHIZOAFFECTIVE DISORDER
     Dosage: 450MG UNKNOWN
     Route: 048
     Dates: start: 20051001
  2. SEROQUEL [Concomitant]
     Indication: PSYCHOTIC DISORDER
     Dosage: 200MG TWICE PER DAY
     Route: 048
     Dates: start: 20051001
  3. EUNERPAN [Concomitant]
     Indication: RESTLESSNESS
     Dosage: 50MG PER DAY
     Route: 048
     Dates: start: 20060901

REACTIONS (4)
  - AUTOIMMUNE THYROIDITIS [None]
  - BLOOD THYROID STIMULATING HORMONE INCREASED [None]
  - HYPOTHYROIDISM [None]
  - THYROIDITIS [None]
